FAERS Safety Report 21517829 (Version 1)
Quarter: 2022Q4

REPORT INFORMATION
  Report Type: Spontaneous
  Country: JP (occurrence: JP)
  Receive Date: 20221028
  Receipt Date: 20221028
  Transmission Date: 20230112
  Serious: Yes (Hospitalization, Other)
  Sender: FDA-Public Use
  Company Number: JP-NOVARTISPH-NVSC2022JP238726

PATIENT
  Age: 48 Year
  Sex: Male

DRUGS (7)
  1. BISOPROLOL [Suspect]
     Active Substance: BISOPROLOL
     Indication: Chest discomfort
     Dosage: 1.25 MG
     Route: 048
  2. BISOPROLOL [Suspect]
     Active Substance: BISOPROLOL
     Indication: Palpitations
  3. METHIMAZOLE [Concomitant]
     Active Substance: METHIMAZOLE
     Indication: Chest discomfort
     Dosage: 15 MG
     Route: 065
  4. METHIMAZOLE [Concomitant]
     Active Substance: METHIMAZOLE
     Indication: Palpitations
  5. NITROGLYCERIN [Concomitant]
     Active Substance: NITROGLYCERIN
     Indication: Chest discomfort
     Dosage: 0.3 MG
     Route: 065
  6. NITROGLYCERIN [Concomitant]
     Active Substance: NITROGLYCERIN
     Indication: Palpitations
  7. LANDIOLOL [Concomitant]
     Active Substance: LANDIOLOL
     Indication: Heart rate abnormal
     Dosage: 0.125 MG/KG/MIN
     Route: 065

REACTIONS (2)
  - Ventricular fibrillation [Unknown]
  - Product use in unapproved indication [Unknown]
